FAERS Safety Report 9498435 (Version 1)
Quarter: 2013Q3

REPORT INFORMATION
  Report Type: Report from Study
  Country: JP (occurrence: JP)
  Receive Date: 20130904
  Receipt Date: 20130904
  Transmission Date: 20140515
  Serious: Yes (Hospitalization)
  Sender: FDA-Public Use
  Company Number: JP-GLAXOSMITHKLINE-B0917502A

PATIENT
  Age: 65 Year
  Sex: Female

DRUGS (9)
  1. TYKERB [Suspect]
     Indication: BREAST CANCER
     Route: 048
     Dates: start: 20130418
  2. TYKERB [Suspect]
     Indication: BREAST CANCER
     Route: 048
     Dates: start: 20130521
  3. XELODA [Suspect]
     Indication: BREAST CANCER
     Route: 048
     Dates: start: 20130418
  4. XELODA [Suspect]
     Indication: BREAST CANCER
     Route: 048
     Dates: start: 20130521
  5. TRASTUZUMAB [Concomitant]
     Dates: start: 201103
  6. CHINESE MEDICINE [Concomitant]
     Route: 048
  7. CHINESE MEDICINE [Concomitant]
     Route: 048
  8. CHINESE MEDICINE [Concomitant]
     Route: 048
  9. CHINESE MEDICINE [Concomitant]
     Route: 048

REACTIONS (1)
  - Hypokalaemia [Recovered/Resolved]
